FAERS Safety Report 25573920 (Version 1)
Quarter: 2025Q3

REPORT INFORMATION
  Report Type: Spontaneous
  Country: EU (occurrence: EU)
  Receive Date: 20250717
  Receipt Date: 20250717
  Transmission Date: 20251020
  Serious: Yes (Life-Threatening, Other)
  Sender: EISAI
  Company Number: None

PATIENT
  Age: 80 Year
  Sex: Male
  Weight: 70 kg

DRUGS (6)
  1. LENVIMA [Suspect]
     Active Substance: LENVATINIB
     Indication: Papillary thyroid cancer
     Dosage: ONCE DAILY IN THE MORNING
     Dates: start: 20240509, end: 20250619
  2. LENVIMA [Suspect]
     Active Substance: LENVATINIB
     Dates: start: 20230317, end: 20240508
  3. FAMOTIDINE [Concomitant]
     Active Substance: FAMOTIDINE
     Indication: Product used for unknown indication
     Dosage: AT NIGHT.
  4. PERINDOPRIL ARGININE [Concomitant]
     Active Substance: PERINDOPRIL ARGININE
     Indication: Product used for unknown indication
     Dosage: IN THE MORNING.
  5. ZETOVAR [Concomitant]
     Indication: Product used for unknown indication
     Dosage: TOTAL DOSE 50MG AT NIGHT.
  6. LEVOTHYROXINE SODIUM [Concomitant]
     Active Substance: LEVOTHYROXINE SODIUM
     Indication: Product used for unknown indication
     Dosage: IN THE MORNING ON AN EMPTY STOMACH

REACTIONS (6)
  - Liver disorder [Recovering/Resolving]
  - Quality of life decreased [Recovering/Resolving]
  - Palmar-plantar erythrodysaesthesia syndrome [Recovering/Resolving]
  - Hepatitis E [Recovering/Resolving]
  - Fatigue [Recovering/Resolving]
  - Epigastric discomfort [Recovering/Resolving]

NARRATIVE: CASE EVENT DATE: 20240509
